FAERS Safety Report 4479213-9 (Version None)
Quarter: 2004Q4

REPORT INFORMATION
  Report Type: 
  Country: None (occurrence: None)
  Receive Date: 20041020
  Receipt Date: 20041008
  Transmission Date: 20050328
  Serious: Yes (Hospitalization, Other)
  Sender: FDA-Public Use
  Company Number: US-JNJFOC-20040608128

PATIENT
  Sex: Male
  Weight: 104.33 kg

DRUGS (18)
  1. REMICADE [Suspect]
     Route: 042
  2. REMICADE [Suspect]
     Route: 042
  3. REMICADE [Suspect]
     Route: 042
  4. REMICADE [Suspect]
     Route: 042
  5. REMICADE [Suspect]
     Indication: CROHN'S DISEASE
     Route: 042
  6. CRESTOR [Concomitant]
  7. ALTACE [Concomitant]
  8. VERAPAMIL [Concomitant]
  9. PLAVIX [Concomitant]
  10. FOLIC ACID [Concomitant]
  11. ASPIRIN [Concomitant]
  12. PREDNISONE [Concomitant]
  13. IMURAN [Concomitant]
  14. NEXIUM [Concomitant]
  15. WELLBUTRIN [Concomitant]
  16. VITAMIN B6 [Concomitant]
  17. VITAMIN B-12 [Concomitant]
  18. LORATADINE [Concomitant]

REACTIONS (5)
  - INSOMNIA [None]
  - NAUSEA [None]
  - OROPHARYNGEAL SWELLING [None]
  - TREMOR [None]
  - VENTRICULAR EXTRASYSTOLES [None]
